FAERS Safety Report 18196058 (Version 2)
Quarter: 2021Q2

REPORT INFORMATION
  Report Type: Spontaneous
  Country: CA (occurrence: CA)
  Receive Date: 20200825
  Receipt Date: 20210623
  Transmission Date: 20210717
  Serious: Yes (Life-Threatening, Hospitalization)
  Sender: FDA-Public Use
  Company Number: CA-TEVA-2020-CA-1817471

PATIENT
  Age: 8 Month
  Sex: Male
  Weight: 8 kg

DRUGS (9)
  1. VEPESID [Suspect]
     Active Substance: ETOPOSIDE
     Indication: NEUROBLASTOMA
     Dosage: 36 MILLIGRAM DAILY;
     Route: 042
  2. SEPTRA [Concomitant]
     Active Substance: SULFAMETHOXAZOLE\TRIMETHOPRIM
  3. DOXORUBICIN [Suspect]
     Active Substance: DOXORUBICIN
     Indication: NEUROBLASTOMA
     Route: 042
  4. FILGRASTIM [Concomitant]
     Active Substance: FILGRASTIM
  5. ONDANSETRON [Concomitant]
     Active Substance: ONDANSETRON
  6. ADRIAMYCIN [Suspect]
     Active Substance: DOXORUBICIN HYDROCHLORIDE
     Indication: NEUROBLASTOMA
     Route: 042
  7. LANSOPRAZOLE. [Concomitant]
     Active Substance: LANSOPRAZOLE
  8. SEPTRA [Concomitant]
     Active Substance: SULFAMETHOXAZOLE\TRIMETHOPRIM
  9. CARBOPLATIN. [Suspect]
     Active Substance: CARBOPLATIN
     Indication: NEUROBLASTOMA
     Route: 042

REACTIONS (5)
  - Off label use [Unknown]
  - Neutropenia [Unknown]
  - Product use in unapproved indication [Unknown]
  - Pyrexia [Unknown]
  - Post procedural haemorrhage [Unknown]
